FAERS Safety Report 8438379-6 (Version None)
Quarter: 2012Q2

REPORT INFORMATION
  Report Type: 
  Country: None (occurrence: None)
  Receive Date: 20120614
  Receipt Date: 20120613
  Transmission Date: 20120825
  Serious: Yes (Hospitalization)
  Sender: FDA-Public Use
  Company Number: DE-MERCK-1204DEU00102

PATIENT
  Age: 71 Year
  Sex: Female
  Weight: 54 kg

DRUGS (5)
  1. ASPIRIN [Concomitant]
     Route: 048
  2. METOPROLOL TARTRATE [Concomitant]
     Route: 048
  3. ZOCOR [Suspect]
     Indication: HYPERCHOLESTEROLAEMIA
     Route: 048
     Dates: start: 20030101, end: 20120512
  4. ZETIA [Suspect]
     Indication: HYPERCHOLESTEROLAEMIA
     Route: 048
     Dates: start: 20031201, end: 20120512
  5. RAMIPRIL [Concomitant]
     Route: 048

REACTIONS (7)
  - NAUSEA [None]
  - VOMITING [None]
  - WEIGHT DECREASED [None]
  - PANCREATIC CYST [None]
  - MUSCLE SPASMS [None]
  - DECREASED APPETITE [None]
  - FLUSHING [None]
